FAERS Safety Report 4708970-9 (Version None)
Quarter: 2005Q3

REPORT INFORMATION
  Report Type: 
  Country: None (occurrence: None)
  Receive Date: 20050705
  Receipt Date: 20050621
  Transmission Date: 20060218
  Serious: Yes (Hospitalization, Disabling)
  Sender: FDA-Public Use
  Company Number: 2005092505

PATIENT
  Age: 10 Year
  Sex: Female
  Weight: 28 kg

DRUGS (3)
  1. GENOTROPIN [Suspect]
     Indication: HYPOPITUITARISM
     Dosage: 1.2 MG (12 MG, DAILY), SUBCUTANEOUS
     Route: 058
     Dates: start: 20050131, end: 20050522
  2. DESMOPRESSIN (DESMOPRESSIN) [Concomitant]
  3. HYDROCORTISONE [Concomitant]

REACTIONS (2)
  - GERM CELL CANCER [None]
  - PITUITARY TUMOUR [None]
